FAERS Safety Report 4921564-5 (Version None)
Quarter: 2006Q1

REPORT INFORMATION
  Report Type: 
  Country: None (occurrence: None)
  Receive Date: 20060222
  Receipt Date: 20060222
  Transmission Date: 20060701
  Serious: Yes (Hospitalization)
  Sender: FDA-Public Use
  Company Number: None

PATIENT
  Age: 40 Year
  Sex: Male

DRUGS (8)
  1. CALCIUM CARBONATE (CALCIUM CARBONATE) [Suspect]
  2. SODIUM BICARBONATE [Concomitant]
  3. THYROXINE SODIUM [Concomitant]
  4. CARVEDILOL [Concomitant]
  5. SIMVASTATIN [Concomitant]
  6. HUMAN INSULIN [Concomitant]
  7. INSULIN ASPART [Concomitant]
  8. LORCET-HD [Concomitant]

REACTIONS (2)
  - BLOOD POTASSIUM INCREASED [None]
  - MOVEMENT DISORDER [None]
